FAERS Safety Report 15023330 (Version 1)
Quarter: 2018Q2

REPORT INFORMATION
  Report Type: Spontaneous
  Country: SE (occurrence: SE)
  Receive Date: 20180618
  Receipt Date: 20180618
  Transmission Date: 20180711
  Serious: Yes (Other)
  Sender: FDA-Public Use
  Company Number: SE-MYLANLABS-2018M1039643

PATIENT
  Age: 65 Year
  Sex: Female

DRUGS (1)
  1. TAMOXIFEN MYLAN [Suspect]
     Active Substance: TAMOXIFEN
     Indication: BREAST CANCER IN SITU
     Dosage: UNK
     Dates: end: 20170602

REACTIONS (1)
  - Deafness bilateral [Unknown]

NARRATIVE: CASE EVENT DATE: 20160806
